FAERS Safety Report 24979440 (Version 1)
Quarter: 2025Q1

REPORT INFORMATION
  Report Type: Report from Study
  Country: US (occurrence: US)
  Receive Date: 20250218
  Receipt Date: 20250218
  Transmission Date: 20250408
  Serious: Yes (Other)
  Sender: AUROBINDO
  Company Number: US-AUROBINDO-AUR-APL-2025-008271

PATIENT
  Age: 4 Decade
  Sex: Male

DRUGS (1)
  1. PROGESTERONE [Suspect]
     Active Substance: PROGESTERONE
     Indication: Gender reassignment therapy
     Route: 048

REACTIONS (1)
  - Pancreatitis acute [Unknown]
